FAERS Safety Report 11110431 (Version 1)
Quarter: 2015Q2

REPORT INFORMATION
  Report Type: Spontaneous
  Country: US (occurrence: None)
  Receive Date: 20150512
  Receipt Date: 20150512
  Transmission Date: 20150821
  Serious: Yes (Hospitalization)
  Sender: FDA-Public Use
  Company Number: None

PATIENT
  Age: 60 Year
  Sex: Male
  Weight: 69.4 kg

DRUGS (1)
  1. BELATACEPT [Suspect]
     Active Substance: BELATACEPT
     Indication: IMMUNOSUPPRESSION
     Dosage: 250 MG ONCE IVPB
     Route: 042
     Dates: start: 20140404

REACTIONS (5)
  - Respiratory failure [None]
  - Pneumonia [None]
  - Zygomycosis [None]
  - Pneumonia necrotising [None]
  - Dialysis [None]

NARRATIVE: CASE EVENT DATE: 20140404
